FAERS Safety Report 15068289 (Version 1)
Quarter: 2018Q3

REPORT INFORMATION
  Report Type: Spontaneous
  Country: NL (occurrence: US)
  Receive Date: 20180626
  Receipt Date: 20180626
  Transmission Date: 20181010
  Serious: No
  Sender: FDA-Public Use
  Company Number: NL-GILEAD-2018-0344943

PATIENT
  Age: 35 Year
  Sex: Male

DRUGS (1)
  1. YESCARTA [Suspect]
     Active Substance: AXICABTAGENE CILOLEUCEL
     Indication: LYMPHOMA
     Dosage: 141800000 CAR T?CELLS, ONCE
     Dates: start: 201803, end: 201803

REACTIONS (8)
  - Pyrexia [Unknown]
  - Neuropathy peripheral [None]
  - Herpes zoster [Unknown]
  - Trismus [None]
  - Aphasia [Unknown]
  - Pain in extremity [Unknown]
  - Gait disturbance [Unknown]
  - Disorganised speech [None]

NARRATIVE: CASE EVENT DATE: 2018
